FAERS Safety Report 5340611-2 (Version None)
Quarter: 2007Q2

REPORT INFORMATION
  Report Type: 
  Country: None (occurrence: None)
  Receive Date: 20070405
  Receipt Date: 20070102
  Transmission Date: 20071010
  Serious: Yes (Other)
  Sender: FDA-Public Use
  Company Number: US200612003941

PATIENT
  Age: 26 Year
  Sex: Female
  Weight: 68 kg

DRUGS (4)
  1. CYMBALTA [Suspect]
     Indication: DEPRESSION
     Dosage: 30 MG, 2/D
  2. LEXAPRO /USA/ (ESCITALOPRAM) [Concomitant]
  3. ULTRAM [Concomitant]
  4. IMITREX [Concomitant]

REACTIONS (2)
  - FLUSHING [None]
  - SEROTONIN SYNDROME [None]
